FAERS Safety Report 16642187 (Version 5)
Quarter: 2022Q1

REPORT INFORMATION
  Report Type: Other
  Country: US (occurrence: None)
  Receive Date: 20190729
  Receipt Date: 20220308
  Transmission Date: 20220423
  Serious: Yes (Other)
  Sender: FDA-Public Use
  Company Number: US-ROCHE-2358526

PATIENT
  Age: 58 Year
  Sex: Female
  Weight: 77.180 kg

DRUGS (15)
  1. OCREVUS [Suspect]
     Active Substance: OCRELIZUMAB
     Indication: Relapsing-remitting multiple sclerosis
     Dosage: FIRST HALF INFUSION ;ONGOING: NO
     Route: 042
     Dates: start: 20190620
  2. OCREVUS [Suspect]
     Active Substance: OCRELIZUMAB
     Indication: Secondary progressive multiple sclerosis
     Dosage: 2ND HALF INFUSION ;ONGOING: UNKNOWN
     Route: 042
     Dates: start: 20190705
  3. OCREVUS [Suspect]
     Active Substance: OCRELIZUMAB
     Dosage: INTRAVENOUS ONCE EVERY 6 MONTHS
     Route: 042
     Dates: start: 20190623
  4. FLECAINIDE [Concomitant]
     Active Substance: FLECAINIDE
  5. CARISOPRODOL [Concomitant]
     Active Substance: CARISOPRODOL
  6. HYDROCODONE [Concomitant]
     Active Substance: HYDROCODONE
  7. TOPROL XL [Concomitant]
     Active Substance: METOPROLOL SUCCINATE
  8. FOLIC ACID [Concomitant]
     Active Substance: FOLIC ACID
  9. LISINOPRIL [Concomitant]
     Active Substance: LISINOPRIL
  10. PROTONIX [Concomitant]
     Active Substance: PANTOPRAZOLE SODIUM
  11. PROLIA [Concomitant]
     Active Substance: DENOSUMAB
  12. IMITREX [Concomitant]
     Active Substance: SUMATRIPTAN SUCCINATE
  13. METOPROLOL [Concomitant]
     Active Substance: METOPROLOL
  14. TYLENOL [Concomitant]
     Active Substance: ACETAMINOPHEN
  15. BENADRYL [Concomitant]
     Active Substance: DIPHENHYDRAMINE HYDROCHLORIDE

REACTIONS (12)
  - Urinary tract infection [Recovered/Resolved]
  - Herpes zoster [Recovered/Resolved]
  - Multiple sclerosis relapse [Recovered/Resolved]
  - Blood sodium decreased [Recovering/Resolving]
  - White blood cell count decreased [Not Recovered/Not Resolved]
  - Nasopharyngitis [Not Recovered/Not Resolved]
  - Blood immunoglobulin G decreased [Not Recovered/Not Resolved]
  - Blood iron decreased [Unknown]
  - Blood folate decreased [Unknown]
  - Pruritus [Recovered/Resolved]
  - Headache [Unknown]
  - Cough [Unknown]

NARRATIVE: CASE EVENT DATE: 20190701
